FAERS Safety Report 5721720-2 (Version None)
Quarter: 2008Q2

REPORT INFORMATION
  Report Type: 
  Country: None (occurrence: None)
  Receive Date: 20080429
  Receipt Date: 20070416
  Transmission Date: 20081010
  Serious: No
  Sender: FDA-Public Use
  Company Number: US-ASTRAZENECA-2007UW07416

PATIENT
  Age: 79 Year

DRUGS (3)
  1. NEXIUM [Suspect]
     Route: 048
  2. LOTREL [Concomitant]
  3. ATENOLOL [Concomitant]

REACTIONS (1)
  - SOMNOLENCE [None]
